FAERS Safety Report 18689307 (Version 3)
Quarter: 2021Q1

REPORT INFORMATION
  Report Type: Spontaneous
  Country: JP (occurrence: JP)
  Receive Date: 20201231
  Receipt Date: 20210308
  Transmission Date: 20210419
  Serious: Yes (Hospitalization, Other)
  Sender: FDA-Public Use
  Company Number: JP-BRISTOL-MYERS SQUIBB COMPANY-BMS-2020-086929

PATIENT
  Age: 75 Year
  Sex: Male
  Weight: 68 kg

DRUGS (19)
  1. SAMSCA [Concomitant]
     Active Substance: TOLVAPTAN
     Indication: CARDIAC FAILURE
     Dosage: 7.5 MILLIGRAM, QD
     Route: 065
     Dates: start: 20200824
  2. TIAPRIDE [Concomitant]
     Active Substance: TIAPRIDE
     Indication: DYSKINESIA
     Dosage: 25 MILLIGRAM, TID
     Route: 065
     Dates: start: 20201001
  3. PLETAAL [Suspect]
     Active Substance: CILOSTAZOL
     Indication: PERIPHERAL ARTERIAL OCCLUSIVE DISEASE
     Dosage: 50 MILLIGRAM, BID
     Route: 048
     Dates: start: 20200820, end: 20201006
  4. MIYA?BM [Concomitant]
     Active Substance: CLOSTRIDIUM BUTYRICUM SPORES STRAIN M-55
     Indication: ENTEROCOLITIS
     Dosage: 40 MILLIGRAM, TID
     Route: 065
     Dates: start: 20200824
  5. AZOSEMIDE [Concomitant]
     Active Substance: AZOSEMIDE
     Indication: CARDIAC FAILURE
     Dosage: 60 MILLIGRAM, QD
     Route: 065
     Dates: start: 20200824
  6. ADONA [CARBAZOCHROME SODIUM SULFONATE] [Concomitant]
     Active Substance: CARBAZOCHROME SODIUM SULFONATE
     Indication: HAEMOSTASIS
     Dosage: 3 MILLIGRAM, TID
     Route: 065
     Dates: start: 20200920
  7. LEBENIN [Concomitant]
     Active Substance: LACTOBACILLUS ACIDOPHILUS\STREPTOCOCCUS FAECAIS
     Indication: ENTEROCOLITIS
     Dosage: 1 DOSAGE FORM, TID
     Route: 065
     Dates: start: 20200925
  8. THYRADIN S [Concomitant]
     Active Substance: LEVOTHYROXINE SODIUM
     Indication: HYPOTHYROIDISM
     Dosage: 50 MILLIGRAM, QD
     Route: 065
     Dates: start: 20201001
  9. SODIUM CHLORIDE. [Concomitant]
     Active Substance: SODIUM CHLORIDE
     Indication: HYPONATRAEMIA
     Dosage: 2 GRAM, TID
     Route: 065
     Dates: start: 20201005
  10. ANPLAG [SARPOGRELATE HYDROCHLORIDE] [Suspect]
     Active Substance: SARPOGRELATE HYDROCHLORIDE
     Indication: PERIPHERAL ARTERIAL OCCLUSIVE DISEASE
     Dosage: 100 MILLIGRAM, TID
     Route: 048
     Dates: start: 20200824, end: 20201006
  11. FEBURIC [Concomitant]
     Active Substance: FEBUXOSTAT
     Indication: HYPERURICAEMIA
     Dosage: 10 MILLIGRAM, QD
     Route: 065
     Dates: start: 20200821
  12. SPIRONOLACTONE. [Concomitant]
     Active Substance: SPIRONOLACTONE
     Indication: CARDIAC FAILURE
     Dosage: 25 MILLIGRAM, QD
     Route: 065
     Dates: start: 20200824
  13. ZINC. [Concomitant]
     Active Substance: ZINC
     Indication: HYPOZINCAEMIA
     Dosage: 50 MILLIGRAM, BID
     Route: 065
     Dates: start: 20201001
  14. CETIRIZINE [Concomitant]
     Active Substance: CETIRIZINE HYDROCHLORIDE
     Indication: DERMATITIS
     Dosage: 10 MILLIGRAM, QD
     Route: 065
     Dates: start: 20201001
  15. TRANSAMIN [Concomitant]
     Active Substance: TRANEXAMIC ACID
     Indication: HAEMOSTASIS
     Dosage: 250 MILLIGRAM, TID
     Route: 048
     Dates: start: 20200920
  16. ELIQUIS [Suspect]
     Active Substance: APIXABAN
     Indication: CEREBROVASCULAR ACCIDENT PROPHYLAXIS
     Dosage: 5 MILLIGRAM, BID
     Route: 048
     Dates: start: 20200818, end: 20201006
  17. TENELIA [Concomitant]
     Active Substance: TENELIGLIPTIN
     Indication: DIABETES MELLITUS
     Dosage: 20 MILLIGRAM, QD
     Route: 065
     Dates: start: 20200821
  18. CALCIUM CARBONATE. [Concomitant]
     Active Substance: CALCIUM CARBONATE
     Indication: HYPOCALCAEMIA
     Dosage: 1 GRAM, TID
     Route: 065
     Dates: start: 20201001
  19. PREDNISOLONE. [Concomitant]
     Active Substance: PREDNISOLONE
     Indication: HYPONATRAEMIA
     Dosage: 5 MILLIGRAM, QD
     Route: 065
     Dates: start: 20201005

REACTIONS (8)
  - Haematuria [Recovered/Resolved]
  - Muscular weakness [Unknown]
  - Haematochezia [Recovered/Resolved]
  - Somnolence [Recovered/Resolved]
  - Tachypnoea [Recovered/Resolved]
  - Chromaturia [Recovered/Resolved]
  - Urinary tract infection [Recovered/Resolved]
  - Anaemia [Recovered/Resolved]

NARRATIVE: CASE EVENT DATE: 20200828
